FAERS Safety Report 19939668 (Version 1)
Quarter: 2021Q4

REPORT INFORMATION
  Report Type: Report from Study
  Country: None (occurrence: US)
  Receive Date: 20211012
  Receipt Date: 20211012
  Transmission Date: 20220303
  Serious: Yes (Hospitalization, Other)
  Sender: FDA-Public Use
  Company Number: US-ABBVIE-21K-163-4107663-00

PATIENT
  Age: 26 Year
  Sex: Male

DRUGS (3)
  1. HUMIRA [Suspect]
     Active Substance: ADALIMUMAB
     Indication: Pouchitis
     Route: 058
     Dates: start: 201804
  2. HUMIRA [Suspect]
     Active Substance: ADALIMUMAB
     Indication: Proctitis
  3. VITAMIN C [Concomitant]
     Active Substance: ASCORBIC ACID
     Indication: Supplementation therapy

REACTIONS (11)
  - Large intestinal stenosis [Not Recovered/Not Resolved]
  - Haemoglobin decreased [Recovered/Resolved]
  - Blood iron decreased [Recovered/Resolved]
  - Gastrointestinal haemorrhage [Not Recovered/Not Resolved]
  - Off label use [Not Recovered/Not Resolved]
  - Haematochezia [Not Recovered/Not Resolved]
  - Pouchitis [Recovering/Resolving]
  - Proctitis [Recovering/Resolving]
  - Pouchitis [Not Recovered/Not Resolved]
  - Proctitis [Not Recovered/Not Resolved]
  - Crohn^s disease [Unknown]

NARRATIVE: CASE EVENT DATE: 20180401
